FAERS Safety Report 8276688 (Version 2)
Quarter: 2013Q2

REPORT INFORMATION
  Report Type: Spontaneous
  Country: FR (occurrence: FR)
  Receive Date: 20111206
  Receipt Date: 20130627
  Transmission Date: 20140414
  Serious: Yes (Hospitalization)
  Sender: FDA-Public Use
  Company Number: FR-GLAXOSMITHKLINE-B0766416A

PATIENT
  Age: 64 Year
  Sex: Female
  Weight: 70 kg

DRUGS (9)
  1. ARIXTRA [Suspect]
     Indication: THROMBOPHLEBITIS
     Route: 065
     Dates: start: 201106, end: 20110720
  2. PREVISCAN [Suspect]
     Indication: THROMBOPHLEBITIS
     Dosage: 20MG UNKNOWN
     Route: 048
     Dates: start: 201106, end: 20110720
  3. SIFROL [Concomitant]
     Route: 048
  4. EFFEXOR [Concomitant]
     Route: 048
  5. RIVOTRIL [Concomitant]
     Route: 048
  6. TRANSIPEG [Concomitant]
  7. CHONDROSULF [Concomitant]
     Route: 048
  8. IXPRIM [Concomitant]
     Route: 048
  9. STILNOX [Concomitant]
     Route: 048

REACTIONS (3)
  - Muscle haemorrhage [Recovered/Resolved]
  - Anaemia [Recovered/Resolved]
  - Incorrect drug administration duration [Unknown]
